FAERS Safety Report 10159237 (Version 2)
Quarter: 2014Q2

REPORT INFORMATION
  Report Type: Report from Study
  Country: CA (occurrence: CA)
  Receive Date: 20140508
  Receipt Date: 20140508
  Transmission Date: 20141212
  Serious: Yes (Hospitalization)
  Sender: FDA-Public Use
  Company Number: CA-JNJFOC-20140319130

PATIENT
  Sex: Male

DRUGS (5)
  1. REMICADE [Suspect]
     Indication: CROHN^S DISEASE
     Route: 042
     Dates: start: 20110524
  2. BENADRYL [Concomitant]
     Indication: PREMEDICATION
     Route: 065
  3. TYLENOL [Concomitant]
     Indication: PREMEDICATION
     Route: 065
  4. HYDROCORTISONE [Concomitant]
     Indication: PREMEDICATION
     Route: 065
  5. AZATHIOPRINE [Concomitant]
     Indication: CROHN^S DISEASE
     Route: 065

REACTIONS (2)
  - CD4 lymphocytes abnormal [Not Recovered/Not Resolved]
  - Neutropenia [Not Recovered/Not Resolved]
